FAERS Safety Report 15276748 (Version 1)
Quarter: 2018Q3

REPORT INFORMATION
  Report Type: Spontaneous
  Country: US (occurrence: US)
  Receive Date: 20180729
  Receipt Date: 20180729
  Transmission Date: 20181010
  Serious: Yes (Hospitalization)
  Sender: FDA-Public Use
  Company Number: None

PATIENT
  Age: 37 Year
  Sex: Female
  Weight: 103.5 kg

DRUGS (10)
  1. MIRENA [Concomitant]
     Active Substance: LEVONORGESTREL
  2. TYLENOL [Concomitant]
     Active Substance: ACETAMINOPHEN
  3. NASONEX [Concomitant]
     Active Substance: MOMETASONE FUROATE
  4. CIMZIA [Suspect]
     Active Substance: CERTOLIZUMAB PEGOL
     Indication: PSORIATIC ARTHROPATHY
     Dosage: ?          QUANTITY:1 INJECTION(S);?
     Route: 058
     Dates: start: 20180705, end: 20180719
  5. CELEXA [Concomitant]
     Active Substance: CITALOPRAM HYDROBROMIDE
  6. FOLIC ACID. [Concomitant]
     Active Substance: FOLIC ACID
  7. NAPROXEN. [Concomitant]
     Active Substance: NAPROXEN
  8. METHOTREXATE. [Concomitant]
     Active Substance: METHOTREXATE
  9. PREDNISONE. [Concomitant]
     Active Substance: PREDNISONE
  10. BENADRYL [Concomitant]
     Active Substance: DIPHENHYDRAMINE HYDROCHLORIDE

REACTIONS (9)
  - Peripheral swelling [None]
  - Pruritus [None]
  - Nausea [None]
  - Diarrhoea [None]
  - Vomiting [None]
  - Rash pustular [None]
  - Impaired work ability [None]
  - Family stress [None]
  - Economic problem [None]

NARRATIVE: CASE EVENT DATE: 20180727
